FAERS Safety Report 9494345 (Version 4)
Quarter: 2013Q3

REPORT INFORMATION
  Report Type: Spontaneous
  Country: FI (occurrence: FI)
  Receive Date: 20130903
  Receipt Date: 20130918
  Transmission Date: 20140515
  Serious: Yes (Other)
  Sender: FDA-Public Use
  Company Number: FI-AMGEN-FINSP2013059006

PATIENT
  Age: 60 Year
  Sex: Female

DRUGS (11)
  1. ENBREL [Suspect]
     Indication: RHEUMATOID ARTHRITIS
     Dosage: 50 MG, WEEKLY
     Route: 058
     Dates: start: 201211
  2. OXIKLORIN [Concomitant]
     Dosage: 300 MG, UNK
  3. PREDNISON [Concomitant]
     Dosage: 5 MG, UNK
  4. PRIMASPAN [Concomitant]
     Dosage: 100 MG, UNK
  5. PANACOD [Concomitant]
     Dosage: AS NEEDED
  6. ZOLT                               /01159001/ [Concomitant]
     Dosage: 15 MG, UNK
  7. CALCICHEW-D3 FORTE [Concomitant]
     Dosage: TWICE DAILY
  8. EMCONCOR [Concomitant]
     Dosage: 5 MG, UNK
  9. ALPROX [Concomitant]
     Dosage: 0.5 MG, 2X/DAY
  10. DINIT [Concomitant]
     Dosage: AS NEEDED
  11. COHEMIN [Concomitant]
     Dosage: UNK

REACTIONS (3)
  - Rheumatoid arthritis [Not Recovered/Not Resolved]
  - Osteoarthritis [Unknown]
  - Drug ineffective [Unknown]
